FAERS Safety Report 24543777 (Version 2)
Quarter: 2025Q4

REPORT INFORMATION
  Report Type: Report from Study
  Country: EU (occurrence: EU)
  Receive Date: 20241024
  Receipt Date: 20251024
  Transmission Date: 20260117
  Serious: Yes (Hospitalization)
  Sender: ABBVIE
  Company Number: EU-ABBVIE-5971264

PATIENT
  Age: 70 Year
  Sex: Male

DRUGS (20)
  1. RISANKIZUMAB [Suspect]
     Active Substance: RISANKIZUMAB
     Indication: Psoriasis
     Route: 058
     Dates: start: 20210907, end: 20211007
  2. RISANKIZUMAB [Suspect]
     Active Substance: RISANKIZUMAB
     Route: 058
     Dates: start: 20211007
  3. CLOPIDOGREL [Concomitant]
     Active Substance: CLOPIDOGREL BISULFATE
     Indication: Myocardial infarction
     Route: 048
     Dates: start: 20181108
  4. BETAMETHASONE [Concomitant]
     Active Substance: BETAMETHASONE
     Indication: Psoriasis
     Dosage: TIME INTERVAL: 0.33333333 DAYS: 1 APPLICATION, TOPIC / SKIN / DERMAL SPRAY
     Route: 061
     Dates: start: 20200212
  5. LORMETAZEPAM [Concomitant]
     Active Substance: LORMETAZEPAM
     Indication: Insomnia
     Route: 048
     Dates: start: 20200309
  6. CALCIPOTRIENE [Concomitant]
     Active Substance: CALCIPOTRIENE
     Indication: Psoriasis
     Dosage: 1 APPLICATION, TOPIC / SKIN / DERMAL SPRAY
     Route: 061
     Dates: start: 20190828
  7. DOXAZOSIN [Concomitant]
     Active Substance: DOXAZOSIN MESYLATE
     Indication: Hypertension
     Route: 048
     Dates: start: 20201221
  8. DILTIAZEM [Concomitant]
     Active Substance: DILTIAZEM
     Indication: Myocardial infarction
     Route: 048
     Dates: start: 20190618
  9. GLYCOPYRROLATE [Concomitant]
     Active Substance: GLYCOPYRROLATE
     Indication: Respiratory disorder
     Dosage: 1 INTRANASAL
     Route: 055
     Dates: start: 20200108
  10. FERROUS SULFATE ANHYDROUS [Concomitant]
     Active Substance: FERROUS SULFATE ANHYDROUS
     Indication: Anaemia
     Route: 048
     Dates: start: 20191122
  11. comirnaty [Concomitant]
     Indication: COVID-19 prophylaxis
     Route: 030
     Dates: start: 20231026, end: 20231026
  12. comirnaty [Concomitant]
     Indication: COVID-19 prophylaxis
     Route: 030
     Dates: start: 20221217, end: 20221217
  13. comirnaty [Concomitant]
     Indication: COVID-19 prophylaxis
     Route: 030
     Dates: start: 20211217, end: 20211217
  14. ATORVASTATIN [Concomitant]
     Active Substance: ATORVASTATIN
     Indication: Myocardial infarction
     Route: 048
     Dates: start: 20190531
  15. HYDROCHLOROTHIAZIDE\IRBESARTAN [Concomitant]
     Active Substance: HYDROCHLOROTHIAZIDE\IRBESARTAN
     Indication: Hypertension
     Route: 048
     Dates: start: 20190619
  16. PIMECROLIMUS [Concomitant]
     Active Substance: PIMECROLIMUS
     Indication: Psoriasis
     Dosage: 1 APPLICATION
     Route: 061
     Dates: start: 20211213
  17. RABEPRAZOLE [Concomitant]
     Active Substance: RABEPRAZOLE
     Indication: Prophylaxis against gastrointestinal ulcer
     Route: 048
     Dates: start: 20190619
  18. LINAGLIPTIN [Concomitant]
     Active Substance: LINAGLIPTIN
     Indication: Diabetes mellitus
     Route: 048
     Dates: start: 20231102
  19. Acetylsalicilyc acid [Concomitant]
     Indication: Ischaemia
     Route: 048
     Dates: start: 20240925
  20. IVABRADINE [Concomitant]
     Active Substance: IVABRADINE
     Indication: Myocardial infarction
     Route: 048
     Dates: start: 20220222

REACTIONS (1)
  - Peripheral arterial occlusive disease [Recovering/Resolving]

NARRATIVE: CASE EVENT DATE: 20241007
